FAERS Safety Report 6868871-7 (Version None)
Quarter: 2010Q3

REPORT INFORMATION
  Report Type: 
  Country: None (occurrence: None)
  Receive Date: 20100722
  Receipt Date: 20080623
  Transmission Date: 20110219
  Serious: No
  Sender: FDA-Public Use
  Company Number: US-PFIZER INC-2008053666

PATIENT
  Sex: Female
  Weight: 63.6 kg

DRUGS (4)
  1. CHANTIX [Suspect]
     Indication: SMOKING CESSATION THERAPY
     Dates: start: 20080101, end: 20080101
  2. PROTONIX [Concomitant]
     Indication: GASTRIC DISORDER
  3. OTHER HYPNOTICS AND SEDATIVES [Concomitant]
     Indication: SLEEP DISORDER
  4. CARDIOVASCULAR SYSTEM DRUGS [Concomitant]
     Indication: BLOOD PRESSURE ABNORMAL

REACTIONS (2)
  - ABNORMAL DREAMS [None]
  - INSOMNIA [None]
